FAERS Safety Report 7640276-0 (Version None)
Quarter: 2011Q3

REPORT INFORMATION
  Report Type: 
  Country: None (occurrence: None)
  Receive Date: 20110728
  Receipt Date: 20090814
  Transmission Date: 20111222
  Serious: Yes (Other)
  Sender: FDA-Public Use
  Company Number: US-BAYER-200923211NA

PATIENT
  Age: 39 Year
  Sex: Male
  Weight: 71.655 kg

DRUGS (41)
  1. MAGNEVIST [Suspect]
     Indication: NUCLEAR MAGNETIC RESONANCE IMAGING
     Dosage: UNK
     Route: 042
     Dates: start: 20010421
  2. CARBIDOPA + LEVODOPA [Concomitant]
  3. TOPROL-XL [Concomitant]
  4. RENAGEL [Concomitant]
  5. BUMETANIDE [Concomitant]
  6. VASOTEC [Concomitant]
  7. REGULAR INSULIN [Concomitant]
  8. PROCARDIA XL [Concomitant]
  9. DOXAZOSIN MESYLATE [Concomitant]
  10. MAGNEVIST [Suspect]
     Dosage: UNK
     Dates: start: 20041218
  11. OPTIMARK [Suspect]
     Indication: NUCLEAR MAGNETIC RESONANCE IMAGING
  12. CELLCEPT [Concomitant]
  13. GABAPENTIN [Concomitant]
  14. SLOW FE [Concomitant]
  15. MULTIHANCE [Suspect]
     Indication: NUCLEAR MAGNETIC RESONANCE IMAGING
  16. PROHANCE [Suspect]
     Indication: NUCLEAR MAGNETIC RESONANCE IMAGING
     Dosage: 0.2 MMOL/KG, UNK
     Route: 042
     Dates: start: 20040630, end: 20040630
  17. GADOLINIUM IN UNSPECIFIED DRUG [Suspect]
     Indication: PRODUCT USED FOR UNKNOWN INDICATION
     Dosage: UNK
     Dates: start: 20041210
  18. LANTUS [Concomitant]
  19. RAPAMYCIN [Concomitant]
  20. NOVOLIN [INSULIN] [Concomitant]
  21. CARDURA [Concomitant]
  22. MAGNEVIST [Suspect]
     Indication: ANGIOGRAM
     Dosage: UNK
     Dates: start: 20041105
  23. MAGNEVIST [Suspect]
     Dosage: UNK
     Route: 042
     Dates: start: 20041108
  24. TRENTAL [Concomitant]
  25. RAPAMUNE [Concomitant]
  26. CYCLOSPORINE [Concomitant]
  27. PROHANCE [Suspect]
     Indication: ANGIOGRAM
  28. COUMADIN [Concomitant]
  29. FERROUS SULFATE TAB [Concomitant]
  30. EPOGEN [Concomitant]
  31. PROGRAF [Concomitant]
  32. ENALAPRIL MALEATE [Concomitant]
  33. NOVOLOG [Concomitant]
  34. OMNISCAN [Suspect]
     Indication: NUCLEAR MAGNETIC RESONANCE IMAGING
  35. PREDNISONE [Concomitant]
     Dosage: UNK
     Dates: start: 19930101
  36. FOSRENOL [Concomitant]
  37. SENSIPAR [Concomitant]
  38. ACETYLSALICYLIC ACID SRT [Concomitant]
  39. MAGNESIUM OXIDE [Concomitant]
  40. DYNACIRC [Concomitant]
  41. VALCYTE [Concomitant]

REACTIONS (11)
  - NEPHROGENIC SYSTEMIC FIBROSIS [None]
  - JOINT STIFFNESS [None]
  - SKIN INDURATION [None]
  - MUSCLE TIGHTNESS [None]
  - FATIGUE [None]
  - PAIN [None]
  - JOINT CONTRACTURE [None]
  - MOBILITY DECREASED [None]
  - SKIN HYPERTROPHY [None]
  - PAIN IN JAW [None]
  - EXTREMITY CONTRACTURE [None]
